FAERS Safety Report 7242227-X (Version None)
Quarter: 2011Q1

REPORT INFORMATION
  Report Type: 
  Country: None (occurrence: None)
  Receive Date: 20110124
  Receipt Date: 20110121
  Transmission Date: 20110831
  Serious: Yes (Other)
  Sender: FDA-Public Use
  Company Number: IT-MERCK-1101ITA00033

PATIENT
  Age: 84 Year
  Sex: Female

DRUGS (2)
  1. ZOCOR [Suspect]
     Indication: HYPERCHOLESTEROLAEMIA
     Route: 048
     Dates: start: 20100501, end: 20100501
  2. NUTRITIONAL SUPPLEMENTS [Concomitant]
     Route: 065

REACTIONS (2)
  - VISUAL IMPAIRMENT [None]
  - HEADACHE [None]
